FAERS Safety Report 19514643 (Version 5)
Quarter: 2021Q3

REPORT INFORMATION
  Report Type: Report from Study
  Country: US (occurrence: US)
  Receive Date: 20210709
  Receipt Date: 20210910
  Transmission Date: 20211014
  Serious: Yes (Hospitalization)
  Sender: FDA-Public Use
  Company Number: US-PFIZER INC-2021831489

PATIENT
  Age: 13 Year
  Sex: Male
  Weight: 76.9 kg

DRUGS (22)
  1. CHOLECALCIFEROL [Concomitant]
     Active Substance: CHOLECALCIFEROL
     Indication: VITAMIN SUPPLEMENTATION
     Dosage: UNK
     Route: 048
     Dates: start: 20210524
  2. ONDANSETRON [Concomitant]
     Active Substance: ONDANSETRON
     Dosage: UNK
     Route: 048
     Dates: start: 20210615
  3. FLUTICASONE. [Concomitant]
     Active Substance: FLUTICASONE
     Dosage: UNK
     Route: 045
     Dates: start: 20200622
  4. BENADRYL [Concomitant]
     Active Substance: DIPHENHYDRAMINE HYDROCHLORIDE
     Indication: NAUSEA
     Dosage: PRN
     Route: 048
     Dates: start: 20210615
  5. TALAZOPARIB. [Suspect]
     Active Substance: TALAZOPARIB
     Indication: EWING^S SARCOMA
     Dosage: 500 UG, 2X/DAY
     Dates: start: 20210616, end: 20210616
  6. TALAZOPARIB. [Suspect]
     Active Substance: TALAZOPARIB
     Dosage: 500 UG, 2X/DAY
     Dates: start: 20210716, end: 20210716
  7. ONIVYDE [Suspect]
     Active Substance: IRINOTECAN HYDROCHLORIDE
     Dosage: 139 MG, (ONCE ON DAY 1 AND DAY 8 OF EACH 21 DAY CYCLE)
     Dates: start: 20210723
  8. LEVSIN [Concomitant]
     Active Substance: HYOSCYAMINE SULFATE
     Indication: MUSCLE SPASMS
     Dosage: UNK
     Route: 048
     Dates: start: 20210628
  9. DITROPAN [Concomitant]
     Active Substance: OXYBUTYNIN CHLORIDE
     Indication: HYPERTONIC BLADDER
     Dosage: UNK
     Route: 048
     Dates: start: 20210524
  10. MACRODANTIN [Concomitant]
     Active Substance: NITROFURANTOIN
     Indication: ANTIBIOTIC THERAPY
     Dosage: UNK
     Route: 048
     Dates: start: 20210524
  11. ONIVYDE [Suspect]
     Active Substance: IRINOTECAN HYDROCHLORIDE
     Dosage: 167 MG, CYCLIC (ONCE ON DAY 1 AND DAY 8 OF EACH 21 DAY CYCLE)
     Route: 042
     Dates: start: 20210617
  12. ONIVYDE [Suspect]
     Active Substance: IRINOTECAN HYDROCHLORIDE
     Dosage: 129.9 MG, (ONCE ON DAY 1 AND DAY 8 OF EACH 21 DAY CYCLE)
     Route: 042
     Dates: start: 20210716
  13. DRONABINOL. [Concomitant]
     Active Substance: DRONABINOL
     Indication: INCREASED APPETITE
     Dosage: UNK
     Route: 048
     Dates: start: 20210628
  14. AMLODIPINE [Concomitant]
     Active Substance: AMLODIPINE BESYLATE
     Indication: HYPERTENSION
     Dosage: UNK
     Route: 048
  15. TALAZOPARIB. [Suspect]
     Active Substance: TALAZOPARIB
     Dosage: 1000 UG, DAILY
     Dates: start: 20210621
  16. EMEND (FOSAPREPITANT DIMEGLUMINE) [Concomitant]
     Active Substance: FOSAPREPITANT DIMEGLUMINE
     Indication: ANTIEMETIC SUPPORTIVE CARE
     Dosage: UNK
     Route: 042
     Dates: start: 20210628, end: 20210628
  17. ZYRTEC [Concomitant]
     Active Substance: CETIRIZINE HYDROCHLORIDE
     Indication: SEASONAL ALLERGY
     Dosage: UNK
     Route: 048
     Dates: start: 20201012
  18. TALAZOPARIB. [Suspect]
     Active Substance: TALAZOPARIB
     Dosage: 1000 UG, 2X/DAY
     Dates: start: 20210717, end: 20210721
  19. ONIVYDE [Suspect]
     Active Substance: IRINOTECAN HYDROCHLORIDE
     Indication: EWING^S SARCOMA
     Dosage: 185 MG, CYCLIC (ONCE ON DAY 1 AND DAY 8 OF EACH 21 DAY CYCLE)
     Route: 042
     Dates: start: 20210616, end: 20210623
  20. PEPCID [Concomitant]
     Active Substance: FAMOTIDINE
     Indication: ANTACID THERAPY
     Dosage: UNK
     Route: 048
     Dates: start: 20210628
  21. LOPERAMIDE [Concomitant]
     Active Substance: LOPERAMIDE
     Indication: ANTIDIARRHOEAL SUPPORTIVE CARE
     Dosage: UNK
     Route: 048
     Dates: start: 20210621
  22. LACTOBACILLUS ACIDOPHILUS [Concomitant]
     Active Substance: LACTOBACILLUS ACIDOPHILUS
     Indication: PROBIOTIC THERAPY
     Dosage: UNK
     Route: 048
     Dates: start: 20210628

REACTIONS (3)
  - Febrile neutropenia [Recovered/Resolved]
  - Decreased appetite [Recovered/Resolved]
  - Weight decreased [Recovered/Resolved]

NARRATIVE: CASE EVENT DATE: 20210629
